FAERS Safety Report 8203180 (Version 3)
Quarter: 2013Q2

REPORT INFORMATION
  Report Type: Spontaneous
  Country: GB (occurrence: GB)
  Receive Date: 20111027
  Receipt Date: 20130612
  Transmission Date: 20140414
  Serious: Yes (Other)
  Sender: FDA-Public Use
  Company Number: PHFR2011GB05979

PATIENT
  Age: 65 Year
  Sex: Male
  Weight: 74.4 kg

DRUGS (9)
  1. DICLOFENAC [Suspect]
     Indication: ARTHRITIS
     Dosage: 150 MG, QD
     Route: 048
     Dates: start: 20090801, end: 20110810
  2. OMEPRAZOLE [Suspect]
     Indication: DYSPEPSIA
     Dosage: 20 MG, QD
     Route: 048
     Dates: start: 20090801, end: 20110810
  3. CITALOPRAM [Concomitant]
     Indication: ANXIETY
     Dosage: 20 MG, QD
     Route: 048
  4. CODEINE [Concomitant]
  5. FYBOGEL [Concomitant]
  6. GABAPENTIN [Concomitant]
  7. MOVICOL [Concomitant]
  8. NORTRIPTYLINE [Concomitant]
  9. PARACETAMOL [Concomitant]

REACTIONS (3)
  - Serum ferritin abnormal [Unknown]
  - Vitamin B12 decreased [Unknown]
  - Blood count abnormal [Unknown]
